FAERS Safety Report 7435204-7 (Version None)
Quarter: 2011Q2

REPORT INFORMATION
  Report Type: 
  Country: None (occurrence: None)
  Receive Date: 20110425
  Receipt Date: 20110418
  Transmission Date: 20111010
  Serious: Yes (Hospitalization, Other)
  Sender: FDA-Public Use
  Company Number: US-ABBOTT-11P-163-0700924-00

PATIENT
  Sex: Male
  Weight: 70.37 kg

DRUGS (4)
  1. HUMIRA [Suspect]
     Indication: CROHN'S DISEASE
     Dosage: LOADING DOSE 160MG
     Route: 058
     Dates: start: 20110106, end: 20110112
  2. TRAMADOL HCL [Concomitant]
     Indication: PAIN
  3. PREDNISONE [Concomitant]
     Indication: CROHN'S DISEASE
     Dosage: 3 WEEKS BEFORE
  4. MULTI-VITAMIN [Concomitant]
     Indication: VITAMIN SUPPLEMENTATION

REACTIONS (7)
  - INTESTINAL RESECTION [None]
  - INCISION SITE PAIN [None]
  - INTESTINAL STENOSIS [None]
  - ASTHENIA [None]
  - WHITE BLOOD CELL COUNT INCREASED [None]
  - VOMITING [None]
  - DIZZINESS [None]
